FAERS Safety Report 13651417 (Version 2)
Quarter: 2017Q3

REPORT INFORMATION
  Report Type: Report from Study
  Country: JP (occurrence: JP)
  Receive Date: 20170614
  Receipt Date: 20170703
  Transmission Date: 20171127
  Serious: No
  Sender: FDA-Public Use
  Company Number: JP-VIFOR (INTERNATIONAL) INC.-VIT-2017-02914

PATIENT
  Age: 66 Year
  Sex: Male
  Weight: 50.4 kg

DRUGS (15)
  1. L-CARTIN FF [Concomitant]
     Active Substance: LEVOCARNITINE
     Route: 048
  2. LENDORMIN D [Concomitant]
     Active Substance: BROTIZOLAM
     Indication: INSOMNIA
     Route: 048
  3. AMLODIPINE [Concomitant]
     Active Substance: AMLODIPINE BESYLATE
     Route: 048
  4. METHYCOBAL [Concomitant]
     Active Substance: METHYLCOBALAMIN
     Route: 048
  5. SENNOSIDE [Concomitant]
     Active Substance: SENNOSIDES
     Route: 048
  6. ALESION [Concomitant]
     Active Substance: EPINASTINE HYDROCHLORIDE
     Route: 048
  7. TAKEPRON 15 [Concomitant]
     Route: 048
  8. ONEALFA [Concomitant]
     Active Substance: ALFACALCIDOL
     Route: 048
  9. RASILEZ [Concomitant]
     Active Substance: ALISKIREN
     Route: 048
  10. DIOVAN [Concomitant]
     Active Substance: VALSARTAN
     Route: 048
  11. BIO-THREE [Concomitant]
     Active Substance: HERBALS
     Dosage: 6 TABLETS
     Route: 048
  12. KIKLIN [Concomitant]
     Active Substance: BIXALOMER
     Route: 048
  13. VELPHORO [Suspect]
     Active Substance: FERRIC OXYHYDROXIDE
     Indication: HYPERPHOSPHATAEMIA
     Route: 048
     Dates: start: 20160806, end: 20160819
  14. RIVOTRIL [Concomitant]
     Active Substance: CLONAZEPAM
     Indication: RESTLESS LEGS SYNDROME
     Route: 048
  15. NESP [Concomitant]
     Active Substance: DARBEPOETIN ALFA

REACTIONS (2)
  - Haemoglobin decreased [Recovering/Resolving]
  - Constipation [Recovering/Resolving]

NARRATIVE: CASE EVENT DATE: 20160806
